FAERS Safety Report 12632096 (Version 2)
Quarter: 2016Q3

REPORT INFORMATION
  Report Type: Spontaneous
  Country: US (occurrence: US)
  Receive Date: 20160808
  Receipt Date: 20160808
  Transmission Date: 20161109
  Serious: No
  Sender: FDA-Public Use
  Company Number: US-BEH-2016061874

PATIENT
  Sex: Female
  Weight: 78 kg

DRUGS (25)
  1. CYMBALTA [Concomitant]
     Active Substance: DULOXETINE HYDROCHLORIDE
  2. DIPHENHYDRAMINE. [Concomitant]
     Active Substance: DIPHENHYDRAMINE
  3. LORAZEPAM. [Concomitant]
     Active Substance: LORAZEPAM
  4. TRAZODONE [Concomitant]
     Active Substance: TRAZODONE HYDROCHLORIDE
  5. HIZENTRA [Suspect]
     Active Substance: HUMAN IMMUNOGLOBULIN G
     Route: 058
  6. OXYCODONE [Concomitant]
     Active Substance: OXYCODONE
  7. OXYGEN. [Concomitant]
     Active Substance: OXYGEN
  8. EPIPEN [Concomitant]
     Active Substance: EPINEPHRINE
  9. HIZENTRA [Suspect]
     Active Substance: HUMAN IMMUNOGLOBULIN G
     Route: 058
  10. ALPRAZOLAM. [Concomitant]
     Active Substance: ALPRAZOLAM
  11. ROPINIROLE. [Concomitant]
     Active Substance: ROPINIROLE
  12. OPANA [Concomitant]
     Active Substance: OXYMORPHONE HYDROCHLORIDE
  13. PROVENTIL [Concomitant]
     Active Substance: ALBUTEROL
  14. NORTIPTYLINE [Concomitant]
     Active Substance: NORTRIPTYLINE
  15. SIMVASTATIN. [Concomitant]
     Active Substance: SIMVASTATIN
  16. ADVAIR HFA [Concomitant]
     Active Substance: FLUTICASONE PROPIONATE\SALMETEROL XINAFOATE
  17. ASPIRIN. [Concomitant]
     Active Substance: ASPIRIN
  18. XOLAIR [Concomitant]
     Active Substance: OMALIZUMAB
  19. ACETAMINOPHEN. [Concomitant]
     Active Substance: ACETAMINOPHEN
  20. AMBIEN [Concomitant]
     Active Substance: ZOLPIDEM TARTRATE
  21. HIZENTRA [Suspect]
     Active Substance: HUMAN IMMUNOGLOBULIN G
     Indication: IMMUNODEFICIENCY COMMON VARIABLE
     Route: 058
  22. PANTOPRAZOLE [Concomitant]
     Active Substance: PANTOPRAZOLE SODIUM
  23. CELEBREX [Concomitant]
     Active Substance: CELECOXIB
  24. FOSAMAX [Concomitant]
     Active Substance: ALENDRONATE SODIUM
  25. IPRATROPIUM-ALBUTEROL [Concomitant]
     Active Substance: ALBUTEROL\IPRATROPIUM

REACTIONS (3)
  - Influenza like illness [Unknown]
  - Administration site reaction [Unknown]
  - Administration site extravasation [Unknown]
